FAERS Safety Report 12963489 (Version 1)
Quarter: 2016Q4

REPORT INFORMATION
  Report Type: Spontaneous
  Country: BE (occurrence: BE)
  Receive Date: 20161122
  Receipt Date: 20161122
  Transmission Date: 20170207
  Serious: Yes (Hospitalization)
  Sender: FDA-Public Use
  Company Number: BE-ACCORD-045758

PATIENT
  Age: 37 Year
  Sex: Female

DRUGS (5)
  1. PRAZEPAM [Concomitant]
     Active Substance: PRAZEPAM
  2. QUETIAPINE. [Suspect]
     Active Substance: QUETIAPINE
     Indication: PSYCHOTIC DISORDER
     Dosage: EXTENDED-RELEASE
  3. LEVOMEPROMAZINE [Concomitant]
     Active Substance: LEVOMEPROMAZINE
  4. LORAZEPAM. [Concomitant]
     Active Substance: LORAZEPAM
  5. BROMPERIDOL/BROMPERIDOL DECANOATE/BROMPERIDOL LACTATE [Concomitant]

REACTIONS (5)
  - Congestive cardiomyopathy [Recovering/Resolving]
  - Cardiac failure [Recovering/Resolving]
  - Pulmonary embolism [Recovering/Resolving]
  - Dry mouth [Unknown]
  - Bundle branch block left [Recovering/Resolving]
